FAERS Safety Report 5917200-1 (Version None)
Quarter: 2008Q4

REPORT INFORMATION
  Report Type: 
  Country: None (occurrence: None)
  Receive Date: 20081014
  Receipt Date: 20081009
  Transmission Date: 20090506
  Serious: Yes (Hospitalization)
  Sender: FDA-Public Use
  Company Number: FR-BRISTOL-MYERS SQUIBB COMPANY-14365068

PATIENT
  Age: 65 Year
  Sex: Female

DRUGS (11)
  1. ORENCIA [Suspect]
     Indication: POLYARTHRITIS
     Dosage: 750 MG PER COURSE;
     Route: 042
     Dates: start: 20080301
  2. CORTANCYL [Concomitant]
  3. NEBILOX [Concomitant]
  4. METHOTREXATE [Concomitant]
  5. SPECIAFOLDINE [Concomitant]
  6. RABEPRAZOLE SODIUM [Concomitant]
  7. PLAVIX [Concomitant]
  8. PRAVASTATIN [Concomitant]
  9. BIPRETERAX [Concomitant]
  10. CACIT [Concomitant]
  11. PROPOFAN [Concomitant]

REACTIONS (2)
  - DEEP VEIN THROMBOSIS [None]
  - DYSPNOEA [None]
